FAERS Safety Report 6221405-2 (Version None)
Quarter: 2009Q2

REPORT INFORMATION
  Report Type: 
  Country: None (occurrence: None)
  Receive Date: 20090608
  Receipt Date: 20090602
  Transmission Date: 20091009
  Serious: Yes (Death)
  Sender: FDA-Public Use
  Company Number: 2009SP011005

PATIENT
  Age: 69 Year
  Sex: Female
  Weight: 64 kg

DRUGS (4)
  1. PEG-INTRON [Suspect]
     Indication: HEPATITIS C
     Dosage: 40 MCG;QW;SC
     Route: 058
     Dates: start: 20081211, end: 20090421
  2. REBETOL [Suspect]
     Indication: HEPATITIS C
     Dosage: 600 MG;QD;PO
     Route: 048
     Dates: start: 20081211, end: 20090428
  3. LIVACT [Concomitant]
  4. THYRADIN-S [Concomitant]

REACTIONS (3)
  - CEREBRAL THROMBOSIS [None]
  - FALL [None]
  - PLATELET COUNT DECREASED [None]
